FAERS Safety Report 18979727 (Version 1)
Quarter: 2021Q1

REPORT INFORMATION
  Report Type: Spontaneous
  Country: GB (occurrence: GB)
  Receive Date: 20210308
  Receipt Date: 20210308
  Transmission Date: 20210420
  Serious: Yes (Other)
  Sender: FDA-Public Use
  Company Number: GB-PFIZER INC-2021205415

PATIENT
  Age: 30 Year
  Sex: Female
  Weight: 69 kg

DRUGS (1)
  1. DEPO?PROVERA [Suspect]
     Active Substance: MEDROXYPROGESTERONE ACETATE
     Route: 030
     Dates: start: 20210216

REACTIONS (6)
  - Injection site warmth [Recovering/Resolving]
  - Petechiae [Unknown]
  - Muscle tightness [Unknown]
  - Myalgia [Unknown]
  - Injection site erythema [Recovering/Resolving]
  - Injection site discomfort [Recovering/Resolving]

NARRATIVE: CASE EVENT DATE: 202102
